FAERS Safety Report 22698152 (Version 4)
Quarter: 2024Q2

REPORT INFORMATION
  Report Type: Spontaneous
  Country: BG (occurrence: BG)
  Receive Date: 20230712
  Receipt Date: 20240503
  Transmission Date: 20240716
  Serious: Yes (Death, Hospitalization, Other)
  Sender: FDA-Public Use
  Company Number: BG-VERTEX PHARMACEUTICALS-2023-009954

PATIENT
  Age: 22 Year
  Sex: Male

DRUGS (5)
  1. ELEXACAFTOR\IVACAFTOR\TEZACAFTOR [Suspect]
     Active Substance: ELEXACAFTOR\IVACAFTOR\TEZACAFTOR
     Indication: Cystic fibrosis
     Dosage: ALT BTW 2 TABS (75MG IVA/50MG TEZA/100MG ELEXA)AM/ ONE TAB IN AM. NO PM DOSE OF IVA.
     Route: 048
     Dates: start: 2021, end: 20230701
  2. KALYDECO [Suspect]
     Active Substance: IVACAFTOR
     Indication: Cystic fibrosis
     Dosage: UNK
     Route: 048
     Dates: start: 2021, end: 20230701
  3. URSODIOL [Concomitant]
     Active Substance: URSODIOL
     Dosage: 3 TIMES DAILY
  4. OMEPRAZOLE [Concomitant]
     Active Substance: OMEPRAZOLE
     Dosage: 3 TIMES DAILY
  5. RUTASCARBIN [Concomitant]
     Dosage: 3 TIMES DAILY

REACTIONS (7)
  - Cardiac failure [Fatal]
  - Subdural haematoma [Unknown]
  - Paranasal sinus haemorrhage [Unknown]
  - Fall [Recovered/Resolved]
  - Head injury [Not Recovered/Not Resolved]
  - Viral infection [Unknown]
  - Epistaxis [Unknown]

NARRATIVE: CASE EVENT DATE: 20230101
